FAERS Safety Report 6672463-2 (Version None)
Quarter: 2010Q2

REPORT INFORMATION
  Report Type: 
  Country: None (occurrence: None)
  Receive Date: 20100408
  Receipt Date: 20100401
  Transmission Date: 20101027
  Serious: Yes (Hospitalization)
  Sender: FDA-Public Use
  Company Number: IT-NOVOPROD-306117

PATIENT
  Sex: Female

DRUGS (1)
  1. NORDITROPIN [Suspect]
     Indication: GROWTH HORMONE DEFICIENCY
     Dosage: 0.83 MG, QD
     Route: 058
     Dates: start: 20100315, end: 20100319

REACTIONS (5)
  - EYE SWELLING [None]
  - HEADACHE [None]
  - LIP SWELLING [None]
  - NAUSEA [None]
  - PYREXIA [None]
